FAERS Safety Report 16343503 (Version 1)
Quarter: 2019Q2

REPORT INFORMATION
  Report Type: Spontaneous
  Country: CN (occurrence: CN)
  Receive Date: 20190522
  Receipt Date: 20190522
  Transmission Date: 20190711
  Serious: Yes (Hospitalization)
  Sender: FDA-Public Use
  Company Number: CN-BAXTER-2019BAX009869

PATIENT
  Age: 44 Year
  Sex: Male
  Weight: 76 kg

DRUGS (15)
  1. ETOPOSIDE. [Suspect]
     Active Substance: ETOPOSIDE
     Indication: DIFFUSE LARGE B-CELL LYMPHOMA
     Dosage: ETOPOSIDE 0.18 GRAM + 0.9% SODIUM CHLORIDE INJECTION 1000 ML, [DAY 1-3]
     Route: 041
     Dates: start: 20190404, end: 20190406
  2. PHARMORUBICIN RD [Suspect]
     Active Substance: EPIRUBICIN
     Indication: DIFFUSE LARGE B-CELL LYMPHOMA
     Dosage: EPIRUBICIN 140 MG + 0.9% SODIUM CHLORIDE INJECTION 100 ML
     Route: 041
     Dates: start: 20190404, end: 20190404
  3. ENDOXAN [Suspect]
     Active Substance: CYCLOPHOSPHAMIDE
     Indication: DIFFUSE LARGE B-CELL LYMPHOMA
     Dosage: DOSAGE FORM: INJECTION, CYCLOPHOSPHAMIDE 1.3 GRAM + 0.9% SODIUM CHLORIDE INJECTION 250 ML
     Route: 041
     Dates: start: 20190404, end: 20190404
  4. SODIUM CHLORIDE. [Suspect]
     Active Substance: SODIUM CHLORIDE
     Indication: MEDICATION DILUTION
     Dosage: VINDESINE 4 MG + 0.9% SODIUM CHLORIDE INJECTION 20 ML
     Route: 041
     Dates: start: 20190404, end: 20190404
  5. 0.9% SODIUM CHLORIDE INJECTION [Suspect]
     Active Substance: SODIUM CHLORIDE
     Dosage: RITUXIMAB 0.5 GRAM + 0.9% SODIUM CHLORIDE INJECTION 500 ML
     Route: 041
     Dates: start: 20190403, end: 20190403
  6. 0.9% SODIUM CHLORIDE INJECTION [Suspect]
     Active Substance: SODIUM CHLORIDE
     Indication: MEDICATION DILUTION
     Dosage: RITUXIMAB 0.1 GRAM + 0.9% SODIUM CHLORIDE INJECTION 100 ML
     Route: 041
     Dates: start: 20190403, end: 20190403
  7. 0.9% SODIUM CHLORIDE INJECTION [Suspect]
     Active Substance: SODIUM CHLORIDE
     Dosage: RITUXIMAB 0.1 GRAM + 0.9% SODIUM CHLORIDE INJECTION 100 ML
     Route: 041
     Dates: start: 20190403, end: 20190403
  8. MABTHERA [Suspect]
     Active Substance: RITUXIMAB
     Indication: DIFFUSE LARGE B-CELL LYMPHOMA
     Dosage: RITUXIMAB 0.1 GRAM + 0.9% SODIUM CHLORIDE INJECTION 100 ML
     Route: 041
     Dates: start: 20190403, end: 20190403
  9. MABTHERA [Suspect]
     Active Substance: RITUXIMAB
     Dosage: RITUXIMAB 0.5 GRAM + 0.9% SODIUM CHLORIDE INJECTION 500 ML
     Route: 041
     Dates: start: 20190403, end: 20190403
  10. 0.9% SODIUM CHLORIDE INJECTION [Suspect]
     Active Substance: SODIUM CHLORIDE
     Dosage: CYCLOPHOSPHAMIDE 1.3 GRAM + 0.9% SODIUM CHLORIDE INJECTION 250 ML
     Route: 041
     Dates: start: 20190404, end: 20190404
  11. VINDESINE SULFATE [Suspect]
     Active Substance: VINDESINE SULFATE
     Indication: DIFFUSE LARGE B-CELL LYMPHOMA
     Dosage: VINDESINE 4 MG + 0.9% SODIUM CHLORIDE INJECTION 20 ML
     Route: 041
     Dates: start: 20190404, end: 20190404
  12. SODIUM CHLORIDE. [Suspect]
     Active Substance: SODIUM CHLORIDE
     Indication: MEDICATION DILUTION
     Dosage: EPIRUBICIN 140 MG + 0.9% SODIUM CHLORIDE INJECTION 100 ML
     Route: 041
     Dates: start: 20190404, end: 20190404
  13. 0.9% SODIUM CHLORIDE INJECTION [Suspect]
     Active Substance: SODIUM CHLORIDE
     Dosage: ETOPOSIDE 0.18 GRAM + 0.9% SODIUM CHLORIDE INJECTION 1000 ML, [DAY 1-3]
     Route: 041
     Dates: start: 20190404, end: 20190406
  14. PREDNISONE ACETATE [Suspect]
     Active Substance: PREDNISONE ACETATE
     Indication: DIFFUSE LARGE B-CELL LYMPHOMA
     Dosage: DOSAGE FORM: TABLET
     Route: 048
     Dates: start: 20190404, end: 20190408
  15. MABTHERA [Suspect]
     Active Substance: RITUXIMAB
     Dosage: RITUXIMAB 0.1 GRAM + 0.9% SODIUM CHLORIDE INJECTION 100 ML
     Route: 041
     Dates: start: 20190403, end: 20190403

REACTIONS (1)
  - Herpes zoster [Recovering/Resolving]

NARRATIVE: CASE EVENT DATE: 20190420
